FAERS Safety Report 14983146 (Version 1)
Quarter: 2018Q2

REPORT INFORMATION
  Report Type: Spontaneous
  Country: IT (occurrence: IT)
  Receive Date: 20180607
  Receipt Date: 20180607
  Transmission Date: 20180711
  Serious: Yes (Other)
  Sender: FDA-Public Use
  Company Number: IT-ACCORD-067763

PATIENT
  Age: 42 Year
  Sex: Male

DRUGS (5)
  1. CAMPRAL [Suspect]
     Active Substance: ACAMPROSATE CALCIUM
     Dosage: STRENGTH: 333 MG, DOSAGE FORM: UNSPECIFIED
     Route: 048
     Dates: start: 20171207, end: 20171207
  2. ALCOVER [Suspect]
     Active Substance: SODIUM OXYBATE
     Dosage: DOSAGE FORM: UNSPECIFIED
     Route: 048
     Dates: start: 20171207, end: 20171207
  3. LORAZEPAM. [Suspect]
     Active Substance: LORAZEPAM
     Route: 048
     Dates: start: 20171207, end: 20171207
  4. AMLODIPINE [Suspect]
     Active Substance: AMLODIPINE BESYLATE
     Dosage: STRENGTH: 10 MG
     Route: 048
     Dates: start: 20171207, end: 20171207
  5. INVEGA [Suspect]
     Active Substance: PALIPERIDONE
     Dosage: STRENGTH: 6 MG
     Route: 048
     Dates: start: 20171207, end: 20171207

REACTIONS (4)
  - Intentional self-injury [Unknown]
  - Intentional overdose [Unknown]
  - Hypotension [Unknown]
  - Coma [Unknown]

NARRATIVE: CASE EVENT DATE: 20171207
